FAERS Safety Report 13404928 (Version 1)
Quarter: 2017Q2

REPORT INFORMATION
  Report Type: Spontaneous
  Country: US (occurrence: US)
  Receive Date: 20170405
  Receipt Date: 20170405
  Transmission Date: 20170830
  Serious: Yes (Hospitalization)
  Sender: FDA-Public Use
  Company Number: US-BAYER-2017-060027

PATIENT
  Age: 37 Year
  Sex: Female
  Weight: 63.5 kg

DRUGS (1)
  1. MIRENA [Suspect]
     Active Substance: LEVONORGESTREL
     Dosage: 20 MCG/24HR, CONT
     Route: 015
     Dates: start: 20080811, end: 20161215

REACTIONS (2)
  - Mental disorder [Not Recovered/Not Resolved]
  - Anxiety [Recovered/Resolved with Sequelae]

NARRATIVE: CASE EVENT DATE: 20161130
